FAERS Safety Report 22600926 (Version 1)
Quarter: 2023Q2

REPORT INFORMATION
  Report Type: Spontaneous
  Country: US (occurrence: US)
  Receive Date: 20230614
  Receipt Date: 20230614
  Transmission Date: 20230722
  Serious: No
  Sender: FDA-Public Use
  Company Number: US-ABBVIE-5285111

PATIENT
  Age: 62 Year
  Sex: Female

DRUGS (2)
  1. VRAYLAR [Suspect]
     Active Substance: CARIPRAZINE
     Indication: Major depression
     Dosage: FORM STRENGTH: 1.5 MILLIGRAM
     Route: 048
     Dates: start: 20230530, end: 20230530
  2. PROZAC [Concomitant]
     Active Substance: FLUOXETINE HYDROCHLORIDE
     Indication: Major depression

REACTIONS (1)
  - Tardive dyskinesia [Recovering/Resolving]

NARRATIVE: CASE EVENT DATE: 20230530
